FAERS Safety Report 6991464-8 (Version None)
Quarter: 2010Q3

REPORT INFORMATION
  Report Type: 
  Country: None (occurrence: None)
  Receive Date: 20100916
  Receipt Date: 20090825
  Transmission Date: 20110219
  Serious: Yes (Other)
  Sender: FDA-Public Use
  Company Number: US-WYE-H10714109

PATIENT
  Sex: Male
  Weight: 97.61 kg

DRUGS (9)
  1. PRISTIQ [Suspect]
     Indication: DEPRESSION
     Route: 048
     Dates: start: 20090820, end: 20090824
  2. ZETIA [Concomitant]
     Dosage: 10 MG, FREQUENCY UNSPECIFIED
  3. METOPROLOL TARTRATE [Concomitant]
     Dosage: 25 MG, FREQUENCY UNSPECIFIED
  4. OMEPRAZOLE [Concomitant]
     Dosage: 20 MG, FREQUENCY UNSPECIFIED
  5. QUINAPRIL HYDROCHLORIDE [Concomitant]
     Dosage: 10 MG, FREQUENCY UNSPECIFIED
  6. CRESTOR [Concomitant]
     Dosage: 40 MG, FREQUENCY UNSPECIFIED
  7. CYANOCOBALAMIN [Concomitant]
     Dosage: 1 MG, FREQUENCY UNSPECIFIED
     Dates: start: 20090820
  8. FOLIC ACID [Concomitant]
     Dosage: 1 MG, FREQUENCY UNSPECIFIED
     Dates: start: 20090820
  9. CELEBREX [Concomitant]
     Dosage: 100 MG, FREQUENCY UNSPECIFIED

REACTIONS (2)
  - CONDITION AGGRAVATED [None]
  - HYPERTENSION [None]
